FAERS Safety Report 4831303-4 (Version None)
Quarter: 2005Q4

REPORT INFORMATION
  Report Type: 
  Country: None (occurrence: None)
  Receive Date: 20051114
  Receipt Date: 20051028
  Transmission Date: 20060501
  Serious: Yes (Other)
  Sender: FDA-Public Use
  Company Number: S05-FRA-04644-01

PATIENT
  Sex: Female

DRUGS (2)
  1. SEROPLEX (ESCITALOPRAM) [Suspect]
     Dosage: 10 MG DAILY PO
     Route: 048
  2. NOCTAMID (LORMETAZEPAM) [Suspect]

REACTIONS (1)
  - SEXUAL ASSAULT VICTIM [None]
